FAERS Safety Report 25632731 (Version 1)
Quarter: 2025Q3

REPORT INFORMATION
  Report Type: Spontaneous
  Country: US (occurrence: US)
  Receive Date: 20250801
  Receipt Date: 20250801
  Transmission Date: 20251021
  Serious: No
  Sender: GRIFOLS
  Company Number: US-IGSA-BIG0032622

PATIENT
  Age: 73 Year
  Sex: Female

DRUGS (3)
  1. GAMUNEX-C [Suspect]
     Active Substance: HUMAN IMMUNOGLOBULIN G
     Indication: Chronic inflammatory demyelinating polyradiculoneuropathy
     Dosage: 65 GRAM, Q.4WK.
     Route: 042
  2. GAMUNEX-C [Suspect]
     Active Substance: HUMAN IMMUNOGLOBULIN G
     Indication: Renal cancer
     Dosage: 65 GRAM, Q.4WK.
     Route: 042
  3. GAMUNEX-C [Suspect]
     Active Substance: HUMAN IMMUNOGLOBULIN G
     Indication: Single functional kidney

REACTIONS (2)
  - Feeling cold [Unknown]
  - Hypertension [Unknown]

NARRATIVE: CASE EVENT DATE: 20250113
